FAERS Safety Report 18510533 (Version 4)
Quarter: 2021Q1

REPORT INFORMATION
  Report Type: Report from Study
  Country: US (occurrence: US)
  Receive Date: 20201117
  Receipt Date: 20210329
  Transmission Date: 20210419
  Serious: Yes (Death, Life-Threatening, Hospitalization, Disabling, Other)
  Sender: FDA-Public Use
  Company Number: US-B.I. PHARMACEUTICALS,INC./RIDGEFIELD-2020-BI-061276

PATIENT
  Age: 62 Year
  Sex: Male
  Weight: 156.9 kg

DRUGS (6)
  1. PLACEBO [Suspect]
     Active Substance: UNSPECIFIED INGREDIENT
     Indication: CARDIAC FAILURE ACUTE
     Route: 048
     Dates: start: 20201024, end: 20201106
  2. ALDACTONE [Concomitant]
     Active Substance: SPIRONOLACTONE
     Indication: CARDIAC FAILURE CONGESTIVE
     Route: 048
     Dates: start: 20180511, end: 20201111
  3. AMIODARONE [Concomitant]
     Active Substance: AMIODARONE
     Indication: VENTRICULAR TACHYCARDIA
     Route: 048
     Dates: start: 20200416
  4. METOPROLOL SUCCINATE. [Concomitant]
     Active Substance: METOPROLOL SUCCINATE
     Indication: CARDIAC FAILURE CONGESTIVE
     Route: 048
  5. ACETAMINOPHEN;HYDROCODONE [Concomitant]
     Active Substance: ACETAMINOPHEN\HYDROCODONE
     Indication: BACK PAIN
     Dosage: 5?325 MG
     Route: 048
  6. FUROSEMIDE. [Concomitant]
     Active Substance: FUROSEMIDE
     Indication: CARDIAC FAILURE CONGESTIVE
     Route: 048

REACTIONS (17)
  - Sepsis [Fatal]
  - Deafness [Unknown]
  - Hypotension [Unknown]
  - Metastases to bone [Unknown]
  - Metastatic neoplasm [Unknown]
  - Pulmonary oedema [Unknown]
  - Paraplegia [Unknown]
  - Ileus [Unknown]
  - Spinal cord compression [Unknown]
  - Acute kidney injury [Fatal]
  - Cardiac arrest [Recovered/Resolved]
  - Monoplegia [Unknown]
  - Prostate cancer metastatic [Unknown]
  - Cardiac failure acute [Recovered/Resolved]
  - Cauda equina syndrome [Unknown]
  - Metabolic acidosis [Unknown]
  - Acute respiratory failure [Unknown]

NARRATIVE: CASE EVENT DATE: 20201108
